FAERS Safety Report 23746582 (Version 1)
Quarter: 2024Q2

REPORT INFORMATION
  Report Type: Report from Study
  Country: GB (occurrence: GB)
  Receive Date: 20240416
  Receipt Date: 20240416
  Transmission Date: 20240716
  Serious: Yes (Other)
  Sender: FDA-Public Use
  Company Number: GB-Merck Healthcare KGaA-2024019514

PATIENT
  Sex: Female

DRUGS (4)
  1. MAVENCLAD [Suspect]
     Active Substance: CLADRIBINE
     Indication: Multiple sclerosis
     Dosage: YEAR ONE WEEK ONE THERAPY AT A DOSE OF TWO TABLETS ON DAYS 1 AND 2, ONE TABLET ON DAYS 3 TO 5
     Route: 048
     Dates: start: 20220214
  2. MAVENCLAD [Suspect]
     Active Substance: CLADRIBINE
     Dosage: YEAR ONE WEEK FIVE THERAPY AT A DOSE OF TWO TABLETS ON DAYS 1 AND ONE TABLET ON DAYS 2 TO 5
     Route: 048
     Dates: start: 20220405
  3. MAVENCLAD [Suspect]
     Active Substance: CLADRIBINE
     Dosage: YEAR TWO WEEK ONE THERAPY
     Route: 048
     Dates: start: 20230628
  4. MAVENCLAD [Suspect]
     Active Substance: CLADRIBINE
     Dosage: YEAR TWO WEEK FIVE THERAPY AT A DOSE OF TWO TABLETS ON DAYS 1 AND ONE TABLET ON DAYS 2 TO 5
     Route: 048
     Dates: start: 20230725

REACTIONS (2)
  - Abortion spontaneous [Unknown]
  - Maternal exposure timing unspecified [Recovered/Resolved]
